FAERS Safety Report 6931575-6 (Version None)
Quarter: 2010Q3

REPORT INFORMATION
  Report Type: 
  Country: None (occurrence: None)
  Receive Date: 20100819
  Receipt Date: 20100805
  Transmission Date: 20110219
  Serious: Yes (Hospitalization)
  Sender: FDA-Public Use
  Company Number: US-ELI_LILLY_AND_COMPANY-US201008003868

PATIENT
  Sex: Female

DRUGS (3)
  1. FORTEO [Suspect]
     Indication: OSTEOPOROSIS
     Dosage: 20 UG, DAILY (1/D)
  2. LIPITOR [Concomitant]
     Dosage: 5 MG, UNK
  3. PREVACID [Concomitant]
     Dosage: 35 MG, UNK

REACTIONS (4)
  - ASTHENIA [None]
  - DIVERTICULITIS [None]
  - INTESTINAL PERFORATION [None]
  - MEMORY IMPAIRMENT [None]
